FAERS Safety Report 9109944 (Version 3)
Quarter: 2013Q1

REPORT INFORMATION
  Report Type: Report from Study
  Country: US (occurrence: US)
  Receive Date: 20130222
  Receipt Date: 20130319
  Transmission Date: 20140127
  Serious: Yes (Hospitalization)
  Sender: FDA-Public Use
  Company Number: US-BRISTOL-MYERS SQUIBB COMPANY-17385006

PATIENT
  Age: 69 Year
  Sex: Female
  Weight: 79.54 kg

DRUGS (11)
  1. IXEMPRA [Suspect]
     Indication: BREAST CANCER
     Dosage: MOST RECENT DOSE: 31DEC2012
     Route: 042
     Dates: start: 20120820
  2. SORAFENIB [Suspect]
     Indication: BREAST CANCER
     Route: 048
     Dates: start: 20120820
  3. ACTOS [Concomitant]
     Indication: DIABETES MELLITUS
     Dosage: 1 DF: 1 TAB
     Dates: start: 200206
  4. ATENOLOL [Concomitant]
     Indication: HYPERTENSION
     Dosage: 1 DF: 100/25 MG
     Dates: start: 199201
  5. GLYBURIDE [Concomitant]
     Indication: DIABETES MELLITUS
     Dates: start: 200106
  6. METFORMIN [Concomitant]
     Indication: DIABETES MELLITUS
     Dates: start: 200106
  7. LOSARTAN [Concomitant]
     Indication: HYPERTENSION
     Dates: start: 201001
  8. CRESTOR [Concomitant]
     Indication: BLOOD CHOLESTEROL INCREASED
     Dates: start: 201001
  9. ALPRAZOLAM [Concomitant]
     Indication: ANXIETY
     Dates: start: 198201
  10. TIZANIDINE [Concomitant]
     Indication: HYPOTONIA
     Dates: start: 201206
  11. VITAMIN SUPPLEMENT [Concomitant]
     Dosage: 1 DF: 1TAB?DIETARY SUPPLEMENT. DAILY
     Dates: start: 200701

REACTIONS (2)
  - Chest discomfort [Recovered/Resolved]
  - Confusional state [Recovered/Resolved]
